FAERS Safety Report 7604249-6 (Version None)
Quarter: 2011Q3

REPORT INFORMATION
  Report Type: 
  Country: None (occurrence: None)
  Receive Date: 20110712
  Receipt Date: 20110711
  Transmission Date: 20111222
  Serious: Yes (Hospitalization, Other)
  Sender: FDA-Public Use
  Company Number: US-MERCK-1007USA00212

PATIENT
  Age: 58 Year
  Sex: Female
  Weight: 79 kg

DRUGS (5)
  1. LEVOXYL [Concomitant]
     Indication: THYROID DISORDER
     Route: 048
     Dates: start: 19970101
  2. ESTRATEST [Concomitant]
     Indication: HORMONE THERAPY
     Route: 048
     Dates: start: 19900101
  3. FOSAMAX [Suspect]
     Indication: OSTEOPOROSIS
     Route: 048
     Dates: start: 20020125, end: 20070318
  4. VITAMIN D (UNSPECIFIED) [Concomitant]
     Route: 065
  5. CALCIUM (UNSPECIFIED) [Concomitant]
     Route: 065

REACTIONS (30)
  - OSTEOARTHRITIS [None]
  - SCOLIOSIS [None]
  - TINNITUS [None]
  - IMPAIRED HEALING [None]
  - CHEST PAIN [None]
  - FALL [None]
  - HIATUS HERNIA [None]
  - BACK PAIN [None]
  - ROTATOR CUFF SYNDROME [None]
  - HYPERPARATHYROIDISM [None]
  - SEBORRHOEIC KERATOSIS [None]
  - DYSPHAGIA [None]
  - FEMUR FRACTURE [None]
  - DYSLIPIDAEMIA [None]
  - OSTEOPENIA [None]
  - PRURITUS [None]
  - PAPULE [None]
  - DIVERTICULUM [None]
  - GASTROOESOPHAGEAL REFLUX DISEASE [None]
  - ACROCHORDON [None]
  - HYPERCALCAEMIA [None]
  - ADVERSE DRUG REACTION [None]
  - FRACTURE NONUNION [None]
  - POLYCYTHAEMIA VERA [None]
  - ARTHRALGIA [None]
  - PAIN IN EXTREMITY [None]
  - HYPOPHOSPHATAEMIA [None]
  - SPINAL OSTEOARTHRITIS [None]
  - ACTINIC KERATOSIS [None]
  - BODY HEIGHT DECREASED [None]
